FAERS Safety Report 6111725-4 (Version None)
Quarter: 2009Q1

REPORT INFORMATION
  Report Type: 
  Country: None (occurrence: None)
  Receive Date: 20090310
  Receipt Date: 20090310
  Transmission Date: 20090719
  Serious: Yes (Other)
  Sender: FDA-Public Use
  Company Number: None

PATIENT
  Age: 29 Year
  Sex: Female
  Weight: 76.2043 kg

DRUGS (2)
  1. YAZ [Suspect]
     Indication: CONTRACEPTION
     Dosage: 1 TAB QD PO
     Route: 048
     Dates: start: 20090222, end: 20090305
  2. YAZ [Suspect]
     Indication: POLYCYSTIC OVARIES
     Dosage: 1 TAB QD PO
     Route: 048
     Dates: start: 20090222, end: 20090305

REACTIONS (11)
  - ABDOMINAL PAIN UPPER [None]
  - ARTHRALGIA [None]
  - BREAST PAIN [None]
  - BREAST SWELLING [None]
  - DISTURBANCE IN ATTENTION [None]
  - HEADACHE [None]
  - INCREASED APPETITE [None]
  - INSOMNIA [None]
  - MOOD SWINGS [None]
  - NAUSEA [None]
  - SINUS HEADACHE [None]
